FAERS Safety Report 6990850-X (Version None)
Quarter: 2010Q3

REPORT INFORMATION
  Report Type: 
  Country: None (occurrence: None)
  Receive Date: 20100916
  Receipt Date: 20090501
  Transmission Date: 20110219
  Serious: Yes (Other)
  Sender: FDA-Public Use
  Company Number: HQWYE502624AUG04

PATIENT
  Sex: Female

DRUGS (1)
  1. PREMARIN [Suspect]
     Indication: OESTROGEN REPLACEMENT THERAPY

REACTIONS (5)
  - BACK INJURY [None]
  - BREAST CANCER [None]
  - LIMB INJURY [None]
  - NECK INJURY [None]
  - SOFT TISSUE INJURY [None]
